FAERS Safety Report 4683993-7 (Version None)
Quarter: 2005Q2

REPORT INFORMATION
  Report Type: 
  Country: None (occurrence: None)
  Receive Date: 20050607
  Receipt Date: 20050516
  Transmission Date: 20051028
  Serious: Yes (Other)
  Sender: FDA-Public Use
  Company Number: 200514157GDDC

PATIENT
  Age: 44 Year
  Sex: Male

DRUGS (2)
  1. NICODERM [Suspect]
     Indication: SMOKING CESSATION THERAPY
     Dosage: 21MG PER DAY
     Route: 062
     Dates: start: 20020101, end: 20020101
  2. NICODERM [Suspect]
     Dosage: 14MG PER DAY
     Route: 062
     Dates: start: 20020101, end: 20020101

REACTIONS (9)
  - ABNORMAL DREAMS [None]
  - DRUG ABUSER [None]
  - HYPOAESTHESIA [None]
  - INSOMNIA [None]
  - MULTIPLE SCLEROSIS [None]
  - NASAL DRYNESS [None]
  - RASH [None]
  - THIRST [None]
  - WEIGHT INCREASED [None]
